FAERS Safety Report 9664746 (Version 2)
Quarter: 2013Q4

REPORT INFORMATION
  Report Type: Report from Study
  Country: US (occurrence: US)
  Receive Date: 20131101
  Receipt Date: 20131127
  Transmission Date: 20140711
  Serious: No
  Sender: FDA-Public Use
  Company Number: US-US-EMD SERONO, INC.-7246686

PATIENT
  Sex: Female

DRUGS (2)
  1. REBIF [Suspect]
     Indication: MULTIPLE SCLEROSIS
     Route: 058
     Dates: start: 20030618
  2. REBIF [Suspect]
     Route: 058

REACTIONS (7)
  - Bursitis [Not Recovered/Not Resolved]
  - JC virus test positive [Not Recovered/Not Resolved]
  - Influenza [Unknown]
  - Mean platelet volume increased [Unknown]
  - Multiple sclerosis relapse [Recovered/Resolved]
  - Anaemia [Recovering/Resolving]
  - Platelet count decreased [Unknown]
